FAERS Safety Report 10682412 (Version 1)
Quarter: 2014Q4

REPORT INFORMATION
  Report Type: Spontaneous
  Country: US (occurrence: None)
  Receive Date: 20141229
  Receipt Date: 20141229
  Transmission Date: 20150529
  Serious: Yes (Life-Threatening, Other)
  Sender: FDA-Public Use
  Company Number: None

PATIENT
  Age: 54 Year
  Sex: Female
  Weight: 63.5 kg

DRUGS (1)
  1. THALIUM [Suspect]
     Active Substance: THALLIUM
     Indication: BUNDLE BRANCH BLOCK LEFT

REACTIONS (12)
  - Orthostatic hypotension [None]
  - Hypertensive crisis [None]
  - Cardiac disorder [None]
  - Angiopathy [None]
  - Loss of consciousness [None]
  - Vertigo [None]
  - Blindness transient [None]
  - Cardiovascular disorder [None]
  - Vomiting [None]
  - Arrhythmia [None]
  - Skin discolouration [None]
  - Hypoaesthesia [None]

NARRATIVE: CASE EVENT DATE: 20140304
